FAERS Safety Report 8895651 (Version 6)
Quarter: 2013Q3

REPORT INFORMATION
  Report Type: Spontaneous
  Country: US (occurrence: US)
  Receive Date: 20121108
  Receipt Date: 20130829
  Transmission Date: 20140515
  Serious: Yes (Hospitalization, Disabling, Other)
  Sender: FDA-Public Use
  Company Number: US-009507513-1210USA012666

PATIENT
  Sex: Female

DRUGS (5)
  1. FOSAMAX [Suspect]
     Indication: OSTEOPOROSIS
     Dosage: 70 MG, QW
     Route: 048
     Dates: start: 199806
  2. VITAMINS (UNSPECIFIED) [Concomitant]
  3. CALTRATE (CALCIUM CARBONATE (+) CHOLECALCIFEROL) [Concomitant]
     Dosage: 600/600 MG, TID
  4. VITAMIN D (UNSPECIFIED) [Concomitant]
     Indication: OSTEOPOROSIS
     Dosage: 50000 IU, QW
  5. LIBRIUM [Concomitant]
     Indication: ANXIETY
     Dosage: 10 MG, QH

REACTIONS (15)
  - Femur fracture [Unknown]
  - Intramedullary rod insertion [Unknown]
  - Intramedullary rod insertion [Unknown]
  - Intramedullary rod insertion [Unknown]
  - Periprosthetic fracture [Unknown]
  - Haemorrhagic anaemia [Unknown]
  - Low turnover osteopathy [Not Recovered/Not Resolved]
  - Atypical femur fracture [Unknown]
  - Device failure [Unknown]
  - Depression [Unknown]
  - Hypertension [Unknown]
  - Sleep disorder [Unknown]
  - Anxiety [Unknown]
  - Vomiting [Unknown]
  - Diarrhoea [Unknown]
